FAERS Safety Report 5282959-6 (Version None)
Quarter: 2007Q1

REPORT INFORMATION
  Report Type: 
  Country: None (occurrence: None)
  Receive Date: 20070328
  Receipt Date: 20070328
  Transmission Date: 20070707
  Serious: Yes (Other)
  Sender: FDA-Public Use
  Company Number: None

PATIENT
  Age: 38 Year
  Sex: Male
  Weight: 93.4 kg

DRUGS (13)
  1. PROPANTHELINE [Suspect]
  2. DICYCLOMINE HCL INJ [Concomitant]
  3. FISH OIL [Concomitant]
  4. LOPERAMIDE HCL [Concomitant]
  5. BUPROPION HCL [Concomitant]
  6. FLUOXETINE HCL [Concomitant]
  7. CETIRIZINE HCL [Concomitant]
  8. GABAPENTIN [Concomitant]
  9. OMEPRAZOLE [Concomitant]
  10. CETYLPYRIDINIUM / MENTHOL [Concomitant]
  11. GEMFIBROZIL [Concomitant]
  12. ALPRAZOLAM [Concomitant]
  13. FLUNISOLIDE [Concomitant]

REACTIONS (2)
  - ANXIETY [None]
  - DRY MOUTH [None]
